FAERS Safety Report 5005973-4 (Version None)
Quarter: 2006Q1

REPORT INFORMATION
  Report Type: 
  Country: None (occurrence: None)
  Receive Date: 20060320
  Receipt Date: 20050204
  Transmission Date: 20060701
  Serious: Yes (Other)
  Sender: FDA-Public Use
  Company Number: 2005-02-0269

PATIENT
  Sex: Male

DRUGS (2)
  1. PEG-INTRON [Suspect]
     Dates: end: 20041103
  2. REBETOL [Suspect]
     Dosage: ORAL
     Route: 048
     Dates: end: 20041103

REACTIONS (2)
  - AGGRESSION [None]
  - SUICIDAL IDEATION [None]
